FAERS Safety Report 4340358-5 (Version None)
Quarter: 2004Q2

REPORT INFORMATION
  Report Type: 
  Country: None (occurrence: None)
  Receive Date: 20040412
  Receipt Date: 20031211
  Transmission Date: 20050107
  Serious: Yes (Hospitalization)
  Sender: FDA-Public Use
  Company Number: DSA_23738_2003

PATIENT
  Age: 88 Year
  Sex: Female

DRUGS (8)
  1. ENALAPRIL MALEATE [Suspect]
     Indication: HYPERTENSION
  2. OMEPRAZOLE [Suspect]
  3. AMLODIPINE [Suspect]
     Indication: HYPERTENSION
  4. CLOPIDOGREL BISULFATE [Concomitant]
  5. PAROXETINE HCL [Concomitant]
  6. PRISTINAMYCIN [Concomitant]
  7. RILMENIDINE [Concomitant]
  8. TRAMADOL HCL [Concomitant]

REACTIONS (3)
  - CUTANEOUS VASCULITIS [None]
  - RASH PUSTULAR [None]
  - SKIN ULCER [None]
